FAERS Safety Report 5879476-9 (Version None)
Quarter: 2008Q3

REPORT INFORMATION
  Report Type: 
  Country: None (occurrence: None)
  Receive Date: 20080912
  Receipt Date: 20080905
  Transmission Date: 20090109
  Serious: Yes (Other)
  Sender: FDA-Public Use
  Company Number: US-ASTRAZENECA-2008AC02420

PATIENT
  Age: 70 Year
  Sex: Male

DRUGS (3)
  1. PROPOFOL [Suspect]
     Indication: SEDATION
     Route: 042
  2. VANCOMYCIN HYDROCHLORIDE [Concomitant]
     Indication: ANTIBIOTIC THERAPY
  3. CEFTAZIDIME [Concomitant]
     Indication: ANTIBIOTIC THERAPY

REACTIONS (10)
  - CULTURE WOUND POSITIVE [None]
  - INFUSION SITE EXTRAVASATION [None]
  - INFUSION SITE INFECTION [None]
  - INFUSION SITE NECROSIS [None]
  - INFUSION SITE ULCER [None]
  - PATHOGEN RESISTANCE [None]
  - SKIN NECROSIS [None]
  - SKIN ULCER [None]
  - STAPHYLOCOCCAL INFECTION [None]
  - WOUND INFECTION PSEUDOMONAS [None]
